FAERS Safety Report 18355962 (Version 2)
Quarter: 2020Q4

REPORT INFORMATION
  Report Type: Spontaneous
  Country: FR (occurrence: FR)
  Receive Date: 20201007
  Receipt Date: 20201106
  Transmission Date: 20210114
  Serious: Yes (Hospitalization)
  Sender: FDA-Public Use
  Company Number: NVSC2020FR265654

PATIENT
  Age: 52 Year
  Sex: Female
  Weight: 77 kg

DRUGS (6)
  1. ALLOPURINOL. [Suspect]
     Active Substance: ALLOPURINOL
     Indication: PLASMA CELL MYELOMA
     Dosage: 300 MG, QD
     Route: 048
     Dates: start: 20200120, end: 20200121
  2. MELPHALAN. [Suspect]
     Active Substance: MELPHALAN
     Indication: PLASMA CELL MYELOMA
     Dosage: 200 MG/M2, CYCLIC
     Route: 042
     Dates: start: 20200121, end: 20200121
  3. ZOPHREN 2 MG/ML, SOLUTION INJECTABLE EN AMPOULE (I.V.) [Suspect]
     Active Substance: ONDANSETRON
     Indication: PROPHYLAXIS OF NAUSEA AND VOMITING
     Dosage: 16 MG, Q24H
     Route: 042
     Dates: start: 20200121, end: 20200121
  4. EMEND [Suspect]
     Active Substance: APREPITANT
     Indication: PROPHYLAXIS OF NAUSEA AND VOMITING
     Dosage: 125 MG, (TOTAL)
     Route: 048
     Dates: start: 20200121, end: 20200121
  5. AMIKACINE [Suspect]
     Active Substance: AMIKACIN
     Indication: SEPSIS
     Dosage: 2 G (TOTAL)
     Route: 042
     Dates: start: 20200121, end: 20200121
  6. CEFTRIAXONE. [Suspect]
     Active Substance: CEFTRIAXONE
     Indication: SEPSIS
     Dosage: 2 G
     Route: 042
     Dates: start: 20200121, end: 20200121

REACTIONS (1)
  - Dermatitis exfoliative generalised [Recovered/Resolved]

NARRATIVE: CASE EVENT DATE: 20200121
